FAERS Safety Report 7871204 (Version 3)
Quarter: 2013Q3

REPORT INFORMATION
  Report Type: Spontaneous
  Country: US (occurrence: US)
  Receive Date: 20110325
  Receipt Date: 20130927
  Transmission Date: 20140515
  Serious: Yes (Death, Hospitalization)
  Sender: FDA-Public Use
  Company Number: US-JNJFOC-20110308408

PATIENT
  Age: 87 Year
  Sex: Male

DRUGS (1)
  1. LEVAQUIN [Suspect]
     Indication: PREOPERATIVE CARE
     Route: 048

REACTIONS (2)
  - Stevens-Johnson syndrome [Fatal]
  - Documented hypersensitivity to administered drug [Unknown]
